FAERS Safety Report 7117899-0 (Version None)
Quarter: 2010Q4

REPORT INFORMATION
  Report Type: 
  Country: None (occurrence: None)
  Receive Date: 20101118
  Receipt Date: 20101118
  Transmission Date: 20110411
  Serious: Yes (Death)
  Sender: FDA-Public Use
  Company Number: None

PATIENT
  Age: 75 Year
  Sex: Male

DRUGS (8)
  1. REVLIMID [Suspect]
     Indication: MULTIPLE MYELOMA
     Dosage: 10MG DAILY ORALLY
     Route: 048
     Dates: start: 20100413, end: 20100510
  2. PROZAC [Concomitant]
  3. ATROVENT [Concomitant]
  4. FILGRASTIM [Concomitant]
  5. LISINOPRIL [Concomitant]
  6. TRAZODONE HCL [Concomitant]
  7. PEPCID [Concomitant]
  8. FERROUS SULFATE TABLET [Concomitant]

REACTIONS (1)
  - ADVERSE EVENT [None]
